FAERS Safety Report 4469223-X (Version None)
Quarter: 2004Q4

REPORT INFORMATION
  Report Type: 
  Country: None (occurrence: None)
  Receive Date: 20041005
  Receipt Date: 20040921
  Transmission Date: 20050328
  Serious: Yes (Hospitalization)
  Sender: FDA-Public Use
  Company Number: FABR-10761

PATIENT
  Age: 67 Year
  Sex: Female

DRUGS (4)
  1. FABRAZYME [Suspect]
     Indication: FABRY'S DISEASE
     Dosage: 50 MG Q2WKS IV
     Route: 042
     Dates: start: 20030929
  2. CEFOTIAM HYDROCHLORIDE [Concomitant]
  3. KETEK [Concomitant]
  4. THEO-DUR [Concomitant]

REACTIONS (3)
  - BRONCHITIS ACUTE [None]
  - CARDIAC FAILURE CHRONIC [None]
  - CONDITION AGGRAVATED [None]
